FAERS Safety Report 6287922-4 (Version None)
Quarter: 2009Q3

REPORT INFORMATION
  Report Type: 
  Country: None (occurrence: None)
  Receive Date: 20090729
  Receipt Date: 20090716
  Transmission Date: 20100115
  Serious: Yes (Hospitalization, Other)
  Sender: FDA-Public Use
  Company Number: US-BRISTOL-MYERS SQUIBB COMPANY-14676738

PATIENT
  Age: 54 Year
  Sex: Male
  Weight: 99 kg

DRUGS (15)
  1. CETUXIMAB [Suspect]
     Indication: NON-SMALL CELL LUNG CANCER METASTATIC
     Dosage: RECENT INF:13MAY2009;CHIMERIC ANTI-EGFR MAB. HELD ON 22MAY09,27MAY09;WITHDREW CONSENT ON 03JUN09.
     Route: 042
     Dates: start: 20090506, end: 20090513
  2. CARBOPLATIN [Suspect]
     Indication: NON-SMALL CELL LUNG CANCER METASTATIC
     Dosage: ONLY ONCE GIVEN;WITHDREW CONSENT ON 03JUN09.
     Route: 042
     Dates: start: 20090506, end: 20090506
  3. GEMCITABINE [Suspect]
     Indication: NON-SMALL CELL LUNG CANCER METASTATIC
     Dosage: RECENT INF:13MAY2009.HELD ON 27MAY09;WITHDREW CONSENT ON 03JUN09.
     Route: 042
     Dates: start: 20090506, end: 20090513
  4. VALTREX [Concomitant]
     Indication: GENITAL HERPES
     Route: 048
     Dates: start: 20090312
  5. LISINOPRIL [Concomitant]
     Indication: HYPERTENSION
     Route: 048
     Dates: start: 20090303
  6. CRESTOR [Concomitant]
     Indication: HYPERCHOLESTEROLAEMIA
     Route: 048
     Dates: start: 20090312
  7. TOPROL-XL [Concomitant]
     Indication: HYPERTENSION
     Route: 048
     Dates: start: 20081120
  8. ZETIA [Concomitant]
     Indication: HYPERCHOLESTEROLAEMIA
     Route: 048
     Dates: start: 20081120
  9. ASPIRIN [Concomitant]
     Route: 048
     Dates: start: 20090303, end: 20090520
  10. MULTI-VITAMIN [Concomitant]
     Route: 048
     Dates: start: 20090312
  11. FENTANYL-100 [Concomitant]
     Indication: BACK PAIN
     Route: 062
     Dates: start: 20090506
  12. ADVIL [Concomitant]
     Indication: BACK PAIN
     Dosage: 2DF=2TABLETS
     Route: 048
     Dates: start: 20090506
  13. OXYCODONE [Concomitant]
     Indication: BACK PAIN
     Route: 048
     Dates: start: 20090514
  14. PERCOCET [Concomitant]
     Indication: BACK PAIN
     Route: 065
     Dates: start: 20090506, end: 20090514
  15. LEVITRA [Concomitant]
     Route: 048
     Dates: start: 20090312

REACTIONS (2)
  - STOMATITIS [None]
  - THROMBOCYTOPENIA [None]
